FAERS Safety Report 6911038-4 (Version None)
Quarter: 2010Q3

REPORT INFORMATION
  Report Type: 
  Country: None (occurrence: None)
  Receive Date: 20100806
  Receipt Date: 20100729
  Transmission Date: 20110219
  Serious: Yes (Other)
  Sender: FDA-Public Use
  Company Number: B0649276A

PATIENT
  Age: 53 Year
  Sex: Male

DRUGS (3)
  1. PAROXETINE [Suspect]
     Indication: MAJOR DEPRESSION
     Dosage: 20MG PER DAY
     Route: 048
     Dates: start: 20090201, end: 20090411
  2. PAROXETINE HCL [Suspect]
     Indication: MAJOR DEPRESSION
     Dosage: 30MG PER DAY
     Route: 048
     Dates: start: 20090412, end: 20090426
  3. LENDORMIN [Concomitant]
     Indication: INSOMNIA
     Dosage: .5MG PER DAY
     Route: 048
     Dates: start: 20090201, end: 20090427

REACTIONS (6)
  - ACTIVATION SYNDROME [None]
  - HALLUCINATION [None]
  - HALLUCINATION, AUDITORY [None]
  - PARANOIA [None]
  - PERSECUTORY DELUSION [None]
  - SCHIZOPHRENIA [None]
